FAERS Safety Report 5253031-6 (Version None)
Quarter: 2007Q1

REPORT INFORMATION
  Report Type: 
  Country: None (occurrence: None)
  Receive Date: 20070227
  Receipt Date: 20070213
  Transmission Date: 20070707
  Serious: Yes (Other)
  Sender: FDA-Public Use
  Company Number: GXKR2007GB01649

PATIENT
  Age: 48 Year

DRUGS (2)
  1. MIRTAZAPINE [Suspect]
  2. EPANUTIN (PHENYTOIN SODIUM) [Suspect]

REACTIONS (2)
  - DRUG INTERACTION [None]
  - EPILEPSY [None]
